FAERS Safety Report 18637907 (Version 1)
Quarter: 2020Q4

REPORT INFORMATION
  Report Type: Spontaneous
  Country: US (occurrence: US)
  Receive Date: 20201218
  Receipt Date: 20201218
  Transmission Date: 20210114
  Serious: Yes (Other)
  Sender: FDA-Public Use
  Company Number: US-FOUNDATIONCONSUMERHC-2020-US-025263

PATIENT
  Age: 35 Year
  Sex: Female
  Weight: 54.43 kg

DRUGS (5)
  1. ALPRAZOLAM. [Concomitant]
     Active Substance: ALPRAZOLAM
  2. MOTRIN [Concomitant]
     Active Substance: IBUPROFEN
  3. PLAN B ONE-STEP [Suspect]
     Active Substance: LEVONORGESTREL
     Indication: POST COITAL CONTRACEPTION
     Dosage: 1.5 MG TAB X1
     Route: 048
     Dates: start: 20201126, end: 20201126
  4. LINZESS [Concomitant]
     Active Substance: LINACLOTIDE
  5. TYLENOL WITH CODEINE [Concomitant]
     Active Substance: ACETAMINOPHEN\CODEINE PHOSPHATE

REACTIONS (6)
  - Dysmenorrhoea [Recovering/Resolving]
  - Abortion spontaneous [Unknown]
  - Vaginal discharge [Recovered/Resolved]
  - Pregnancy after post coital contraception [Unknown]
  - Vaginal haemorrhage [Not Recovered/Not Resolved]
  - Drug ineffective [Unknown]

NARRATIVE: CASE EVENT DATE: 20201126
